FAERS Safety Report 5271104-9 (Version None)
Quarter: 2007Q1

REPORT INFORMATION
  Report Type: 
  Country: None (occurrence: None)
  Receive Date: 20070321
  Receipt Date: 20070312
  Transmission Date: 20070707
  Serious: Yes (Other)
  Sender: FDA-Public Use
  Company Number: 2006UW21104

PATIENT
  Age: 66 Year
  Sex: Female
  Weight: 68.2 kg

DRUGS (4)
  1. TOPROL-XL [Suspect]
     Route: 048
     Dates: start: 20050101, end: 20070101
  2. VERAPAMIL [Concomitant]
     Route: 048
  3. NAPROSYN [Concomitant]
     Route: 048
  4. ASPIRIN [Concomitant]
     Route: 048

REACTIONS (4)
  - ANTINUCLEAR ANTIBODY POSITIVE [None]
  - CARDIOLIPIN ANTIBODY POSITIVE [None]
  - MUSCULAR WEAKNESS [None]
  - MYALGIA [None]
